FAERS Safety Report 4981138-7 (Version None)
Quarter: 2006Q2

REPORT INFORMATION
  Report Type: 
  Country: None (occurrence: None)
  Receive Date: 20060418
  Receipt Date: 20060405
  Transmission Date: 20061013
  Serious: Yes (Other)
  Sender: FDA-Public Use
  Company Number: HQWYE678406APR06

PATIENT
  Age: 81 Year
  Sex: Female

DRUGS (3)
  1. PROTONIX [Suspect]
     Dosage: 40 MG 1X PER 1 DAY; ORAL
     Route: 048
     Dates: start: 20050707, end: 20050812
  2. VITAMINS [Concomitant]
  3. GLUCOSAMINE [Concomitant]

REACTIONS (7)
  - CEREBROVASCULAR ACCIDENT [None]
  - FALL [None]
  - INFLUENZA [None]
  - PNEUMONIA [None]
  - RESPIRATORY FAILURE [None]
  - UPPER LIMB FRACTURE [None]
  - URINARY TRACT INFECTION [None]
